FAERS Safety Report 8934686 (Version 2)
Quarter: 2013Q2

REPORT INFORMATION
  Report Type: Spontaneous
  Country: US (occurrence: US)
  Receive Date: 20121129
  Receipt Date: 20130402
  Transmission Date: 20140414
  Serious: Yes (Hospitalization, Other)
  Sender: FDA-Public Use
  Company Number: US-BAYER-2012-125048

PATIENT
  Age: 32 Year
  Sex: Female
  Weight: 74.38 kg

DRUGS (10)
  1. OCELLA [Suspect]
     Indication: ACNE
     Dosage: UNK
     Dates: start: 2009
  2. OCELLA [Suspect]
     Indication: MENSTRUAL CYCLE MANAGEMENT
  3. OCELLA [Suspect]
     Indication: PREMENSTRUAL SYNDROME
  4. YAZ [Suspect]
     Dosage: UNK
     Dates: start: 2009, end: 2010
  5. FLAGYL [Concomitant]
  6. SYNTHROID [Concomitant]
     Route: 048
  7. TOPAMAX [Concomitant]
     Dosage: 10 MG, UNK
     Route: 048
  8. VICODIN [Concomitant]
     Indication: MIGRAINE
     Dosage: UNK UNK, PRN
  9. AMERGE [Concomitant]
  10. MELATONIN [Concomitant]

REACTIONS (14)
  - Cholecystectomy [None]
  - Biliary dyskinesia [None]
  - Injury [None]
  - Pain [None]
  - Diarrhoea [None]
  - Constipation [None]
  - Flatulence [None]
  - Dyspepsia [None]
  - Abdominal distension [None]
  - Scar [None]
  - Pain [None]
  - Emotional distress [None]
  - Anxiety [None]
  - Depression [None]
